FAERS Safety Report 9925073 (Version 1)
Quarter: 2014Q1

REPORT INFORMATION
  Report Type: Spontaneous
  Country: US (occurrence: None)
  Receive Date: 20140225
  Receipt Date: 20140225
  Transmission Date: 20141002
  Serious: Yes (Other)
  Sender: FDA-Public Use
  Company Number: None

PATIENT
  Age: 49 Year
  Sex: Male
  Weight: 95.26 kg

DRUGS (1)
  1. METHYLPHENIDATE 36 MG ER TAB [Suspect]
     Indication: ATTENTION DEFICIT/HYPERACTIVITY DISORDER
     Dosage: ONCE DAILY
     Route: 048
     Dates: start: 20131223, end: 20140224

REACTIONS (11)
  - Dizziness [None]
  - Headache [None]
  - Headache [None]
  - Anxiety [None]
  - Insomnia [None]
  - Heart rate increased [None]
  - Thinking abnormal [None]
  - Dysphemia [None]
  - Drug ineffective [None]
  - Product substitution issue [None]
  - Condition aggravated [None]
